FAERS Safety Report 19792534 (Version 1)
Quarter: 2021Q3

REPORT INFORMATION
  Report Type: Report from Study
  Country: None (occurrence: US)
  Receive Date: 20210906
  Receipt Date: 20210906
  Transmission Date: 20211014
  Serious: Yes (Death)
  Sender: FDA-Public Use
  Company Number: US-UNICHEM PHARMACEUTICALS (USA) INC-UCM202108-000772

PATIENT
  Age: 34 Year
  Sex: Male

DRUGS (6)
  1. LAMOTRIGINE. [Suspect]
     Active Substance: LAMOTRIGINE
     Indication: TOXICITY TO VARIOUS AGENTS
     Dosage: UNKNOWN
  2. NORFLUOXETINE [Suspect]
     Active Substance: NORFLUOXETINE
     Indication: TOXICITY TO VARIOUS AGENTS
     Dosage: UNKNOWN
  3. OXYCODONE [Suspect]
     Active Substance: OXYCODONE
     Indication: TOXICITY TO VARIOUS AGENTS
     Dosage: UNKNOWN
  4. 7?AMINOCLONAZEPAM [Suspect]
     Active Substance: 7-AMINOCLONAZEPAM
     Indication: TOXICITY TO VARIOUS AGENTS
     Dosage: UNKNOWN
  5. FLUOXETINE [Suspect]
     Active Substance: FLUOXETINE HYDROCHLORIDE
     Indication: TOXICITY TO VARIOUS AGENTS
     Dosage: UNKNOWN
  6. ALPRAZOLAM. [Suspect]
     Active Substance: ALPRAZOLAM
     Indication: TOXICITY TO VARIOUS AGENTS
     Dosage: UNKNOWN

REACTIONS (2)
  - Toxicity to various agents [Fatal]
  - Completed suicide [Fatal]
